FAERS Safety Report 6941555-2 (Version None)
Quarter: 2010Q3

REPORT INFORMATION
  Report Type: 
  Country: None (occurrence: None)
  Receive Date: 20100825
  Receipt Date: 20100816
  Transmission Date: 20110219
  Serious: Yes (Hospitalization)
  Sender: FDA-Public Use
  Company Number: US-US-EMD SERONO, INC.-233805J09USA

PATIENT
  Sex: Female
  Weight: 73 kg

DRUGS (5)
  1. REBIF [Suspect]
     Indication: MULTIPLE SCLEROSIS
     Route: 058
     Dates: start: 20070622
  2. DARVOCET [Concomitant]
     Indication: BACK PAIN
     Route: 065
  3. DARVOCET [Concomitant]
     Indication: PAIN IN EXTREMITY
  4. DIOVAN [Concomitant]
     Indication: HYPERTENSION
     Route: 065
  5. PAXIL [Concomitant]
     Indication: DEPRESSION
     Route: 065

REACTIONS (4)
  - ABDOMINAL INFECTION [None]
  - GASTROINTESTINAL HAEMORRHAGE [None]
  - HAEMOGLOBIN DECREASED [None]
  - INJECTION SITE REACTION [None]
